FAERS Safety Report 7635614-9 (Version None)
Quarter: 2011Q3

REPORT INFORMATION
  Report Type: 
  Country: None (occurrence: None)
  Receive Date: 20110726
  Receipt Date: 20110715
  Transmission Date: 20111222
  Serious: Yes (Other)
  Sender: FDA-Public Use
  Company Number: PHHY2011US64635

PATIENT
  Sex: Female
  Weight: 103 kg

DRUGS (3)
  1. AMLODIPINE [Concomitant]
     Dosage: 10 MG, QD
  2. HYDROCHLOROTHIAZID [Concomitant]
     Dosage: 25 MG, QD
  3. EXELON [Suspect]
     Indication: SENILE DEMENTIA
     Dosage: 4.6 MG/24 HR, QD
     Route: 062
     Dates: start: 20110714, end: 20110714

REACTIONS (3)
  - ASTHENIA [None]
  - DYSTONIA [None]
  - ANXIETY [None]
